FAERS Safety Report 4691265-X (Version None)
Quarter: 2005Q2

REPORT INFORMATION
  Report Type: 
  Country: None (occurrence: None)
  Receive Date: 20050610
  Receipt Date: 20050531
  Transmission Date: 20051028
  Serious: Yes (Hospitalization)
  Sender: FDA-Public Use
  Company Number: 2005081856

PATIENT
  Age: 48 Year
  Sex: Female

DRUGS (5)
  1. BEXTRA [Suspect]
     Indication: ARTHRITIS
     Dates: end: 20050323
  2. LEXAPRO [Suspect]
     Indication: ANXIETY
     Dosage: 40 MG (40 MG, 1 IN 1 D), ORAL
     Route: 048
     Dates: start: 20030101
  3. LEXAPRO [Suspect]
     Indication: DEPRESSION
     Dosage: 40 MG (40 MG, 1 IN 1 D), ORAL
     Route: 048
     Dates: start: 20030101
  4. MORPHINE [Suspect]
     Indication: PAIN
     Dates: start: 20040701, end: 20040701
  5. ZONEGRAN [Suspect]
     Indication: MIGRAINE
     Dates: end: 20050301

REACTIONS (8)
  - ANKLE FRACTURE [None]
  - ANXIETY [None]
  - ARTHRALGIA [None]
  - DEPRESSION [None]
  - DRUG HYPERSENSITIVITY [None]
  - FALL [None]
  - RASH [None]
  - RASH PAPULAR [None]
